FAERS Safety Report 6172177-1 (Version None)
Quarter: 2009Q2

REPORT INFORMATION
  Report Type: 
  Country: None (occurrence: None)
  Receive Date: 20090427
  Receipt Date: 20090427
  Transmission Date: 20091009
  Serious: Yes (Life-Threatening, Other)
  Sender: FDA-Public Use
  Company Number: None

PATIENT
  Sex: Male
  Weight: 104.3273 kg

DRUGS (1)
  1. PROZAC [Suspect]
     Indication: DEPRESSION
     Dosage: 20 MG 2 CAPSULES IN AM

REACTIONS (4)
  - AGGRESSION [None]
  - DEPRESSION [None]
  - PRODUCT SUBSTITUTION ISSUE [None]
  - SUICIDE ATTEMPT [None]
